FAERS Safety Report 5150221-8 (Version None)
Quarter: 2006Q4

REPORT INFORMATION
  Report Type: 
  Country: None (occurrence: None)
  Receive Date: 20061108
  Receipt Date: 20061103
  Transmission Date: 20070319
  Serious: Yes (Death)
  Sender: FDA-Public Use
  Company Number: 232125

PATIENT
  Age: 88 Year
  Sex: Female

DRUGS (10)
  1. RANIBIZUMAB (RANIBIZUMAB) PWDR + SOLVENT, INJECTION SOLN [Suspect]
     Indication: MACULAR DEGENERATION
     Dates: start: 20030724, end: 20050608
  2. SYNTHROID [Concomitant]
  3. ALLOPURINOL [Concomitant]
  4. DIGOXIN [Concomitant]
  5. COUMADIN [Concomitant]
  6. TYLENOL (CAPLET) [Concomitant]
  7. SYSTANE (POLYETHYLENE GLYCOL, PROPYLENE GLYCOL) [Concomitant]
  8. ALLEGRA [Concomitant]
  9. LEXAPRO [Concomitant]
  10. FLONASE [Concomitant]

REACTIONS (1)
  - DEATH [None]
